FAERS Safety Report 20720465 (Version 2)
Quarter: 2022Q2

REPORT INFORMATION
  Report Type: Spontaneous
  Country: US (occurrence: US)
  Receive Date: 20220418
  Receipt Date: 20220525
  Transmission Date: 20220721
  Serious: No
  Sender: FDA-Public Use
  Company Number: US-PFIZER INC-202101311613

PATIENT
  Age: 67 Year
  Sex: Female
  Weight: 95.25 kg

DRUGS (1)
  1. CHANTIX [Suspect]
     Active Substance: VARENICLINE TARTRATE
     Indication: Smoking cessation therapy
     Dosage: 1 MG, 2X/DAY (1MG TWICE A DAY, ONCE IN MORNING, ONCE AT NIGHT)
     Dates: start: 2019, end: 202108

REACTIONS (2)
  - Pulmonary mass [Unknown]
  - Recalled product administered [Unknown]

NARRATIVE: CASE EVENT DATE: 20200101
